FAERS Safety Report 18943126 (Version 1)
Quarter: 2021Q1

REPORT INFORMATION
  Report Type: Spontaneous
  Country: US (occurrence: US)
  Receive Date: 20210226
  Receipt Date: 20210226
  Transmission Date: 20210420
  Serious: No
  Sender: FDA-Public Use
  Company Number: US-CIPLA LTD.-2020US08851

PATIENT

DRUGS (2)
  1. DICLOFENAC [Suspect]
     Active Substance: DICLOFENAC
     Indication: BACK PAIN
  2. DICLOFENAC [Suspect]
     Active Substance: DICLOFENAC
     Indication: NECK PAIN
     Dosage: UNK, QD
     Route: 061
     Dates: start: 202009, end: 20201118

REACTIONS (7)
  - Off label use [Unknown]
  - Anxiety [Not Recovered/Not Resolved]
  - Nervousness [Not Recovered/Not Resolved]
  - Product use in unapproved indication [Unknown]
  - Dyspnoea [Not Recovered/Not Resolved]
  - Palpitations [Not Recovered/Not Resolved]
  - Prescription drug used without a prescription [Unknown]

NARRATIVE: CASE EVENT DATE: 202009
